FAERS Safety Report 21167308 (Version 1)
Quarter: 2022Q3

REPORT INFORMATION
  Report Type: Spontaneous
  Country: US (occurrence: None)
  Receive Date: 20220803
  Receipt Date: 20220803
  Transmission Date: 20221026
  Serious: Yes (Other)
  Sender: FDA-Public Use
  Company Number: None

PATIENT
  Age: 5 Year
  Sex: Female
  Weight: 22.68 kg

DRUGS (1)
  1. MONTELUKAST [Suspect]
     Active Substance: MONTELUKAST SODIUM
     Dosage: 2MG 1 AT NIGHT BEDTIME?
     Dates: start: 202204, end: 202206

REACTIONS (7)
  - Agitation [None]
  - Irritability [None]
  - Aggression [None]
  - Suicidal ideation [None]
  - Disturbance in attention [None]
  - Nightmare [None]
  - Enuresis [None]

NARRATIVE: CASE EVENT DATE: 20220630
